FAERS Safety Report 4746724-8 (Version None)
Quarter: 2005Q3

REPORT INFORMATION
  Report Type: 
  Country: None (occurrence: None)
  Receive Date: 20050817
  Receipt Date: 20050715
  Transmission Date: 20060218
  Serious: Yes (Hospitalization)
  Sender: FDA-Public Use
  Company Number: JP-GLAXOSMITHKLINE-B0388055A

PATIENT
  Age: 52 Year
  Sex: Male
  Weight: 53 kg

DRUGS (9)
  1. VALTREX [Suspect]
     Indication: HERPES ZOSTER
     Dosage: 1000MG PER DAY
     Route: 048
     Dates: start: 20050704, end: 20050705
  2. ZOVIRAX [Suspect]
     Indication: ENCEPHALITIS HERPES
     Dosage: 500MG TWICE PER DAY
     Route: 042
     Dates: start: 20050706, end: 20050715
  3. NICARDIPINE HCL [Concomitant]
     Indication: HYPERTENSION
     Route: 042
     Dates: start: 20050706, end: 20050719
  4. SOLU-MEDROL [Concomitant]
     Indication: ENCEPHALITIS HERPES
     Dosage: 1000MG PER DAY
     Route: 042
     Dates: start: 20050706, end: 20050708
  5. IMMUNE GLOBULIN INTRAVENOUS (HUMAN) [Concomitant]
     Indication: ENCEPHALITIS HERPES
     Route: 042
     Dates: start: 20050706, end: 20050708
  6. DECADRON [Concomitant]
     Indication: ENCEPHALITIS HERPES
     Route: 042
     Dates: start: 20050709, end: 20050714
  7. UNASYN [Concomitant]
     Dosage: 3G PER DAY
     Route: 042
     Dates: start: 20050713, end: 20050718
  8. NEOLAMIN [Concomitant]
     Indication: HYPOVITAMINOSIS
     Route: 042
     Dates: start: 20050714, end: 20050718
  9. GASTER [Concomitant]
     Indication: GASTRIC ULCER
     Route: 042
     Dates: start: 20050715, end: 20050718

REACTIONS (6)
  - DEPRESSED LEVEL OF CONSCIOUSNESS [None]
  - DYSARTHRIA [None]
  - GAIT DISTURBANCE [None]
  - INSOMNIA [None]
  - PYREXIA [None]
  - SOMNOLENCE [None]
